FAERS Safety Report 6538413-4 (Version None)
Quarter: 2010Q1

REPORT INFORMATION
  Report Type: 
  Country: None (occurrence: None)
  Receive Date: 20100114
  Receipt Date: 20090519
  Transmission Date: 20100710
  Serious: No
  Sender: FDA-Public Use
  Company Number: US-TYCO HEALTHCARE/MALLINCKRODT-T200901082

PATIENT
  Sex: Male
  Weight: 120.18 kg

DRUGS (1)
  1. OXYCODONE HCL AND ACETAMINOPHEN [Suspect]
     Indication: MUSCULOSKELETAL PAIN
     Dosage: 1-2 TABS, 4-6 HOURS PRN
     Route: 048
     Dates: start: 20090426, end: 20090429

REACTIONS (4)
  - ARTHRITIS [None]
  - LABORATORY TEST ABNORMAL [None]
  - MYALGIA [None]
  - SWELLING [None]
